FAERS Safety Report 9428040 (Version 1)
Quarter: 2013Q3

REPORT INFORMATION
  Report Type: Spontaneous
  Country: US (occurrence: US)
  Receive Date: 20130730
  Receipt Date: 20130730
  Transmission Date: 20140515
  Serious: No
  Sender: FDA-Public Use
  Company Number: US-009507513-1307USA016395

PATIENT
  Sex: Female

DRUGS (1)
  1. COPPERTONE ULTRAGUARD CONTINUOUS SPRAY SPF 15 [Suspect]
     Indication: PRODUCT USED FOR UNKNOWN INDICATION
     Dosage: UNK, ONCE
     Route: 061
     Dates: start: 20130719

REACTIONS (2)
  - Erythema [Not Recovered/Not Resolved]
  - Product quality issue [Unknown]
